FAERS Safety Report 4941903-9 (Version None)
Quarter: 2006Q1

REPORT INFORMATION
  Report Type: 
  Country: None (occurrence: None)
  Receive Date: 20060313
  Receipt Date: 20060221
  Transmission Date: 20060701
  Serious: Yes (Hospitalization)
  Sender: FDA-Public Use
  Company Number: CA-MERCK-0602CAN00121

PATIENT
  Age: 52 Year
  Sex: Male

DRUGS (7)
  1. ZETIA [Suspect]
     Route: 048
     Dates: start: 20030924, end: 20031101
  2. ATORVASTATIN CALCIUM [Suspect]
     Route: 065
     Dates: start: 20001201, end: 20010101
  3. ATORVASTATIN CALCIUM [Suspect]
     Route: 065
     Dates: start: 20010101, end: 20031101
  4. ATENOLOL [Concomitant]
     Route: 065
  5. ASPIRIN [Concomitant]
     Route: 065
  6. CLOPIDOGREL BISULFATE [Concomitant]
     Route: 065
  7. RAMIPRIL [Concomitant]
     Route: 065

REACTIONS (4)
  - ACUTE CORONARY SYNDROME [None]
  - BLOOD CREATINE PHOSPHOKINASE INCREASED [None]
  - DRUG INTERACTION [None]
  - MYALGIA [None]
